FAERS Safety Report 8961384 (Version 2)
Quarter: 2013Q1

REPORT INFORMATION
  Report Type: Spontaneous
  Country: US (occurrence: US)
  Receive Date: 20121212
  Receipt Date: 20130108
  Transmission Date: 20140127
  Serious: No
  Sender: FDA-Public Use
  Company Number: US-009507513-1212USA003963

PATIENT
  Age: 30 None
  Sex: Female
  Weight: 68.93 kg

DRUGS (3)
  1. IMPLANON [Suspect]
     Indication: CONTRACEPTION
     Dosage: 68 MG, UNK
     Route: 059
     Dates: start: 20110803
  2. TOPAMAX [Concomitant]
     Dosage: UNK
  3. MIRENA [Concomitant]

REACTIONS (5)
  - Weight loss poor [Unknown]
  - Headache [Unknown]
  - Migraine [Unknown]
  - Medical device complication [Unknown]
  - Device difficult to use [Unknown]
